FAERS Safety Report 4317616-3 (Version None)
Quarter: 2004Q1

REPORT INFORMATION
  Report Type: 
  Country: None (occurrence: None)
  Receive Date: 20040315
  Receipt Date: 20040309
  Transmission Date: 20041129
  Serious: Yes (Disabling)
  Sender: FDA-Public Use
  Company Number: 200413001GDDC

PATIENT
  Sex: Male

DRUGS (1)
  1. MINIRIN [Suspect]
     Indication: BLEEDING TIME PROLONGED
     Dosage: DOSE: 0.30 UG/KG
     Dates: start: 20010116, end: 20010116

REACTIONS (2)
  - DEAFNESS BILATERAL [None]
  - DEAFNESS UNILATERAL [None]
